FAERS Safety Report 9373845 (Version 1)
Quarter: 2013Q2

REPORT INFORMATION
  Report Type: Report from Study
  Country: FR (occurrence: FR)
  Receive Date: 20130628
  Receipt Date: 20130628
  Transmission Date: 20140414
  Serious: Yes (Death)
  Sender: FDA-Public Use
  Company Number: FR-ROCHE-1242312

PATIENT
  Sex: Male

DRUGS (2)
  1. RITUXIMAB [Suspect]
     Indication: B-CELL LYMPHOMA
     Route: 042
     Dates: start: 20070711, end: 20071005
  2. FLUDARABINE [Concomitant]
     Route: 065
     Dates: start: 20070711

REACTIONS (1)
  - Bronchial carcinoma [Fatal]
